FAERS Safety Report 10592884 (Version 2)
Quarter: 2014Q4

REPORT INFORMATION
  Report Type: Report from Study
  Country: US (occurrence: US)
  Receive Date: 20141119
  Receipt Date: 20141124
  Transmission Date: 20150529
  Serious: Yes (Other)
  Sender: FDA-Public Use
  Company Number: US-SA-2014SA157507

PATIENT
  Age: 79 Year

DRUGS (1)
  1. AFLIBERCEPT [Suspect]
     Active Substance: AFLIBERCEPT
     Indication: AGE-RELATED MACULAR DEGENERATION
     Dosage: INJECTION IN RIGHT EYE
     Route: 031

REACTIONS (7)
  - Vitritis [Recovering/Resolving]
  - Hypopyon [Recovering/Resolving]
  - Eye pain [Recovering/Resolving]
  - Eye inflammation [Recovering/Resolving]
  - Product use issue [Unknown]
  - Visual acuity reduced [Recovering/Resolving]
  - Anterior chamber inflammation [Recovering/Resolving]
